FAERS Safety Report 7435676-8 (Version None)
Quarter: 2011Q2

REPORT INFORMATION
  Report Type: 
  Country: None (occurrence: None)
  Receive Date: 20110425
  Receipt Date: 20110415
  Transmission Date: 20111010
  Serious: Yes (Hospitalization)
  Sender: FDA-Public Use
  Company Number: PHHY2011DE32091

PATIENT

DRUGS (4)
  1. ESCITALOPRAM [Concomitant]
  2. GALANTAMINE HYDROBROMIDE [Suspect]
     Dosage: 16 MG, UNK
  3. GALANTAMINE HYDROBROMIDE [Suspect]
     Indication: DEMENTIA ALZHEIMER'S TYPE
     Dosage: 8 MG, UNK
  4. LITHIUM [Concomitant]

REACTIONS (4)
  - ANGER [None]
  - MANIA [None]
  - ELEVATED MOOD [None]
  - IRRITABILITY [None]
